FAERS Safety Report 7678680-7 (Version None)
Quarter: 2011Q3

REPORT INFORMATION
  Report Type: 
  Country: None (occurrence: None)
  Receive Date: 20110811
  Receipt Date: 20110808
  Transmission Date: 20111222
  Serious: Yes (Hospitalization)
  Sender: FDA-Public Use
  Company Number: US-GILEAD-2011-0042061

PATIENT
  Sex: Female

DRUGS (17)
  1. LETAIRIS [Suspect]
     Indication: PULMONARY HYPERTENSION
     Route: 048
     Dates: start: 20080104
  2. OXYGEN [Concomitant]
  3. REMODULIN [Concomitant]
  4. POTASSIUM CHLORIDE [Concomitant]
  5. MEGACE [Concomitant]
  6. NITROGLYCERIN [Concomitant]
  7. LASIX [Concomitant]
  8. LEVOTHYROXINE SODIUM [Concomitant]
  9. PAROXETINE HCL [Concomitant]
  10. FERROUS SULFATE TAB [Concomitant]
  11. CALCIUM CARBONATE [Concomitant]
  12. ASPIRIN [Concomitant]
  13. LETAIRIS [Suspect]
     Indication: SYSTEMIC SCLEROSIS
  14. ULTRAM [Concomitant]
  15. REVATIO [Concomitant]
  16. TRAZODONE HCL [Concomitant]
  17. ALPRAZOLAM [Concomitant]

REACTIONS (2)
  - PULMONARY HYPERTENSION [None]
  - DYSPNOEA [None]
